FAERS Safety Report 21240667 (Version 1)
Quarter: 2022Q3

REPORT INFORMATION
  Report Type: Spontaneous
  Country: US (occurrence: US)
  Receive Date: 20220823
  Receipt Date: 20220823
  Transmission Date: 20221026
  Serious: Yes (Other)
  Sender: FDA-Public Use
  Company Number: US-AMGEN-USASP2022137604

PATIENT
  Age: 17 Year
  Sex: Female

DRUGS (2)
  1. RITUXIMAB [Suspect]
     Active Substance: RITUXIMAB
     Indication: Granulomatosis with polyangiitis
     Route: 065
  2. CYCLOPHOSPHAMIDE [Suspect]
     Active Substance: CYCLOPHOSPHAMIDE
     Indication: Granulomatosis with polyangiitis
     Route: 065

REACTIONS (7)
  - Oxygen saturation decreased [Unknown]
  - Off label use [Unknown]
  - Complement factor C3 increased [Unknown]
  - Complement factor C4 increased [Unknown]
  - Blood creatinine increased [Recovered/Resolved]
  - Haemoglobin decreased [Unknown]
  - Blood immunoglobulin G decreased [Unknown]
